FAERS Safety Report 10286601 (Version 1)
Quarter: 2014Q3

REPORT INFORMATION
  Report Type: Spontaneous
  Country: JP (occurrence: JP)
  Receive Date: 20140709
  Receipt Date: 20140709
  Transmission Date: 20150326
  Serious: Yes (Death, Life-Threatening, Other)
  Sender: FDA-Public Use
  Company Number: PHHY2014JP084221

PATIENT
  Sex: Male

DRUGS (3)
  1. EXJADE [Suspect]
     Active Substance: DEFERASIROX
     Dosage: 250 MG, DAILY
     Route: 048
     Dates: start: 201404
  2. EXJADE [Suspect]
     Active Substance: DEFERASIROX
     Dosage: 1000 MG, DAILY
     Route: 048
     Dates: start: 201402
  3. EXJADE [Suspect]
     Active Substance: DEFERASIROX
     Indication: APLASTIC ANAEMIA
     Dosage: 250 MG, QD
     Route: 048
     Dates: start: 201312

REACTIONS (3)
  - Aplastic anaemia [Unknown]
  - Neutropenia [Fatal]
  - Infection [Fatal]

NARRATIVE: CASE EVENT DATE: 201406
